FAERS Safety Report 23105278 (Version 1)
Quarter: 2023Q4

REPORT INFORMATION
  Report Type: Report from Study
  Country: MX (occurrence: MX)
  Receive Date: 20231025
  Receipt Date: 20231025
  Transmission Date: 20240110
  Serious: Yes (Other)
  Sender: FDA-Public Use
  Company Number: MX-ABBVIE-5463685

PATIENT
  Age: 43 Year
  Sex: Female
  Weight: 50 kg

DRUGS (3)
  1. HUMIRA [Suspect]
     Active Substance: ADALIMUMAB
     Indication: Psoriatic arthropathy
     Dosage: FORM STRENGTH: 40 MILLIGRAM
     Route: 058
     Dates: start: 20190630, end: 2023
  2. METHOTREXATE [Concomitant]
     Active Substance: METHOTREXATE
     Indication: Psoriatic arthropathy
  3. ARCOXIA [Concomitant]
     Active Substance: ETORICOXIB
     Indication: Pain

REACTIONS (1)
  - Benign uterine neoplasm [Recovered/Resolved]

NARRATIVE: CASE EVENT DATE: 20230901
